FAERS Safety Report 5208675-4 (Version None)
Quarter: 2007Q1

REPORT INFORMATION
  Report Type: 
  Country: None (occurrence: None)
  Receive Date: 20070116
  Receipt Date: 20070105
  Transmission Date: 20070707
  Serious: Yes (Hospitalization, Disabling, Other)
  Sender: FDA-Public Use
  Company Number: PHRM2004FR03685

PATIENT
  Age: 80 Year
  Sex: Male
  Weight: 75 kg

DRUGS (6)
  1. HEMIGOXINE [Concomitant]
     Indication: ATRIAL FIBRILLATION
  2. TANAKAN [Concomitant]
  3. ZOMETA [Suspect]
     Indication: MULTIPLE MYELOMA
     Dosage: 4 MG EVERY 6 WEEKS (15 COURSES)
     Route: 042
     Dates: start: 20021021, end: 20040824
  4. AREDIA [Suspect]
     Dosage: 90 MG EVERY 6 WEEKS (40 COURSES)
     Route: 042
     Dates: start: 19980301, end: 20020912
  5. PREVISCAN [Concomitant]
     Indication: ATRIAL FIBRILLATION
     Dosage: UNK, UNK
     Route: 048
  6. EFFEXOR [Concomitant]
     Dosage: UNK, UNK
     Route: 048

REACTIONS (8)
  - OSTEITIS [None]
  - OSTEONECROSIS [None]
  - PAIN IN JAW [None]
  - SURGERY [None]
  - TOOTH DISORDER [None]
  - TOOTH EXTRACTION [None]
  - TOOTHACHE [None]
  - WOUND DEBRIDEMENT [None]
